FAERS Safety Report 21963686 (Version 1)
Quarter: 2023Q1

REPORT INFORMATION
  Report Type: Spontaneous
  Country: CN (occurrence: CN)
  Receive Date: 20230207
  Receipt Date: 20230207
  Transmission Date: 20230417
  Serious: Yes (Other)
  Sender: FDA-Public Use
  Company Number: None

PATIENT
  Age: 46 Year
  Sex: Female
  Weight: 52 kg

DRUGS (8)
  1. CYCLOPHOSPHAMIDE [Suspect]
     Active Substance: CYCLOPHOSPHAMIDE
     Indication: Breast cancer female
     Dosage: 0.8 G, QD, DILUTED WITH 0.9% SODIUM CHLORIDE (50 ML), D1
     Route: 041
     Dates: start: 20221215, end: 20221215
  2. CYCLOPHOSPHAMIDE [Suspect]
     Active Substance: CYCLOPHOSPHAMIDE
     Indication: Adenocarcinoma
  3. SODIUM CHLORIDE [Suspect]
     Active Substance: SODIUM CHLORIDE
     Indication: Vehicle solution use
     Dosage: 0.9% 50 ML, QD, (DOSAGE FORM: INJECTION), USED TO DILUTE CYCLOPHOSPHAMIDE (0.8 G), D1
     Route: 041
     Dates: start: 20221215, end: 20221215
  4. SODIUM CHLORIDE [Suspect]
     Active Substance: SODIUM CHLORIDE
     Dosage: 0.9% 100 ML, QD, (DOSAGE FORM: INJECTION), USED TO DILUTE EPIRUBICIN HYDROCHLORIDE (110 MG), D1
     Route: 041
     Dates: start: 20221215, end: 20221215
  5. SODIUM CHLORIDE [Suspect]
     Active Substance: SODIUM CHLORIDE
     Dosage: 0.9% 100 ML, QD, USED TO DILUTE GLUTATHIONE (1.80 G), FROM: JAN-2023
     Route: 041
  6. WATER FOR INJECTION [Suspect]
     Active Substance: WATER
     Indication: Vehicle solution use
     Dosage: 50 ML, QD, USED TO DILUTE EPIRUBICIN HYDROCHLORIDE (110 MG), D1
     Route: 041
     Dates: start: 20221215, end: 20221215
  7. EPIRUBICIN HYDROCHLORIDE [Suspect]
     Active Substance: EPIRUBICIN HYDROCHLORIDE
     Indication: Breast cancer female
     Dosage: 110 MG, QD, DILUTED WITH 0.9% SODIUM CHLORIDE (100 ML) AND STERILE WATER FOR INJECTION (50 ML), D1
     Route: 041
     Dates: start: 20221215, end: 20221215
  8. EPIRUBICIN HYDROCHLORIDE [Suspect]
     Active Substance: EPIRUBICIN HYDROCHLORIDE
     Indication: Adenocarcinoma

REACTIONS (2)
  - Liver injury [Recovered/Resolved]
  - Hepatic function abnormal [Recovered/Resolved]

NARRATIVE: CASE EVENT DATE: 20230104
